FAERS Safety Report 5743591-0 (Version None)
Quarter: 2008Q2

REPORT INFORMATION
  Report Type: 
  Country: None (occurrence: None)
  Receive Date: 20080519
  Receipt Date: 20080519
  Transmission Date: 20081010
  Serious: Yes (Life-Threatening, Hospitalization, Other)
  Sender: FDA-Public Use
  Company Number: None

PATIENT
  Sex: Female
  Weight: 56.6996 kg

DRUGS (15)
  1. SEROQUEL [Suspect]
     Indication: ABNORMAL BEHAVIOUR
     Dosage: 1 TABLET AT BEDTIME PO
     Route: 048
     Dates: start: 20000130, end: 20080518
  2. SEROQUEL [Suspect]
     Indication: BIPOLAR II DISORDER
     Dosage: 1 TABLET AT BEDTIME PO
     Route: 048
     Dates: start: 20000130, end: 20080518
  3. SEROQUEL [Suspect]
     Indication: DEPRESSION
     Dosage: 1 TABLET AT BEDTIME PO
     Route: 048
     Dates: start: 20000130, end: 20080518
  4. SEROQUEL [Suspect]
     Indication: INTENTIONAL SELF-INJURY
     Dosage: 1 TABLET AT BEDTIME PO
     Route: 048
     Dates: start: 20000130, end: 20080518
  5. SEROQUEL [Suspect]
     Indication: POST-TRAUMATIC STRESS DISORDER
     Dosage: 1 TABLET AT BEDTIME PO
     Route: 048
     Dates: start: 20000130, end: 20080518
  6. SEROQUEL [Suspect]
     Indication: THINKING ABNORMAL
     Dosage: 1 TABLET AT BEDTIME PO
     Route: 048
     Dates: start: 20000130, end: 20080518
  7. EFFEXOR XR [Concomitant]
  8. TOPAMAX [Concomitant]
  9. KLONOPIN [Concomitant]
  10. INDERAL [Concomitant]
  11. PREMARIN [Concomitant]
  12. MIDRIN [Concomitant]
  13. FIORICET [Concomitant]
  14. PARAFON FORTE DSC [Concomitant]
  15. CENTRUM COMPLETE MULTIVITAMIN [Concomitant]

REACTIONS (12)
  - CARDIAC VALVE DISEASE [None]
  - CHEST PAIN [None]
  - CONSTIPATION [None]
  - FAECALOMA [None]
  - FEAR [None]
  - FRUSTRATION [None]
  - GASTROINTESTINAL DISORDER [None]
  - HYPERHIDROSIS [None]
  - INSOMNIA [None]
  - MIGRAINE [None]
  - NIGHT SWEATS [None]
  - SWELLING [None]
